FAERS Safety Report 19509811 (Version 2)
Quarter: 2021Q3

REPORT INFORMATION
  Report Type: Spontaneous
  Country: US (occurrence: US)
  Receive Date: 20210709
  Receipt Date: 20210818
  Transmission Date: 20211014
  Serious: Yes (Hospitalization, Other)
  Sender: FDA-Public Use
  Company Number: US-ASTRAZENECA-2021A586059

PATIENT
  Age: 833 Month
  Sex: Female
  Weight: 104.3 kg

DRUGS (2)
  1. PULMICORT TURBUHALER [Suspect]
     Active Substance: BUDESONIDE
     Indication: TOBACCO USER
     Dosage: 90 MCG, TWO PUFFS, TWICE DAILY INHALATIONS
     Route: 055
  2. PULMICORT TURBUHALER [Suspect]
     Active Substance: BUDESONIDE
     Indication: CHRONIC OBSTRUCTIVE PULMONARY DISEASE
     Dosage: 90 MCG, TWO PUFFS, TWICE DAILY INHALATIONS
     Route: 055

REACTIONS (16)
  - Injury [Unknown]
  - Visual impairment [Recovered/Resolved]
  - Intentional product misuse [Recovered/Resolved]
  - Eye movement disorder [Recovered/Resolved]
  - Accident at home [Unknown]
  - Fear [Recovered/Resolved]
  - Dyspnoea [Unknown]
  - Loss of consciousness [Recovered/Resolved]
  - Contusion [Unknown]
  - Sepsis [Recovering/Resolving]
  - Peripheral swelling [Recovered/Resolved]
  - Blood blister [Unknown]
  - Expired product administered [Recovered/Resolved]
  - Device malfunction [Unknown]
  - Fatigue [Recovered/Resolved]
  - Wrong technique in device usage process [Unknown]

NARRATIVE: CASE EVENT DATE: 201911
